FAERS Safety Report 10179319 (Version 1)
Quarter: 2014Q2

REPORT INFORMATION
  Report Type: Spontaneous
  Country: US (occurrence: None)
  Receive Date: 20140416
  Receipt Date: 20140416
  Transmission Date: 20141212
  Serious: Yes (Hospitalization, Other)
  Sender: FDA-Public Use
  Company Number: 163-POMAL-13102056

PATIENT
  Age: 65 Year
  Sex: Male
  Weight: 113 kg

DRUGS (5)
  1. POMALYST (POMALIDOMIDE) (2 MILLIGRAM, CAPSULES) [Suspect]
     Indication: PLASMA CELL MYELOMA
     Dosage: 8/2013- DISCONTINUED (21 IN 28 D)
     Route: 048
     Dates: start: 201308
  2. LASIX (FUROSEMIDE) [Concomitant]
  3. CLARITHROMYCIN [Concomitant]
  4. FLUCONAZOLE [Concomitant]
  5. DEXAMETHASONE [Concomitant]

REACTIONS (2)
  - Platelet count decreased [None]
  - Full blood count decreased [None]
